FAERS Safety Report 15006291 (Version 2)
Quarter: 2018Q3

REPORT INFORMATION
  Report Type: Spontaneous
  Country: US (occurrence: US)
  Receive Date: 20180613
  Receipt Date: 20180702
  Transmission Date: 20181010
  Serious: Yes (Hospitalization, Disabling, Other)
  Sender: FDA-Public Use
  Company Number: US-JNJFOC-20180610307

PATIENT
  Age: 47 Year
  Sex: Male

DRUGS (2)
  1. ENTYVIO [Suspect]
     Active Substance: VEDOLIZUMAB
     Indication: CROHN^S DISEASE
     Dosage: 19?MAR?2018
     Route: 042
     Dates: start: 20180305
  2. REMICADE [Suspect]
     Active Substance: INFLIXIMAB
     Indication: CROHN^S DISEASE
     Route: 042
     Dates: start: 2008, end: 201802

REACTIONS (6)
  - Off label use [Unknown]
  - Cough [Unknown]
  - Product use issue [Unknown]
  - Demyelination [Not Recovered/Not Resolved]
  - Crohn^s disease [Unknown]
  - Encephalitis [Not Recovered/Not Resolved]

NARRATIVE: CASE EVENT DATE: 2008
